FAERS Safety Report 7483701-0 (Version None)
Quarter: 2011Q2

REPORT INFORMATION
  Report Type: 
  Country: None (occurrence: None)
  Receive Date: 20110517
  Receipt Date: 20110504
  Transmission Date: 20111010
  Serious: Yes (Other)
  Sender: FDA-Public Use
  Company Number: PHHY2011AU38074

PATIENT
  Sex: Male

DRUGS (2)
  1. WARFARIN SODIUM [Concomitant]
     Dosage: UNK
  2. EXELON [Suspect]
     Dosage: 4.5 MG, (5 CM^2)
     Route: 062
     Dates: start: 20110407

REACTIONS (1)
  - HAEMORRHAGE [None]
